FAERS Safety Report 11088055 (Version 1)
Quarter: 2015Q2

REPORT INFORMATION
  Report Type: Spontaneous
  Country: US (occurrence: None)
  Receive Date: 20150501
  Receipt Date: 20150501
  Transmission Date: 20150821
  Serious: Yes (Life-Threatening, Other)
  Sender: FDA-Public Use
  Company Number: None

PATIENT
  Age: 60 Year
  Sex: Female
  Weight: 58.97 kg

DRUGS (24)
  1. TRANXENE T-TAB [Concomitant]
     Active Substance: CLORAZEPATE DIPOTASSIUM
  2. FLEXERIL [Concomitant]
     Active Substance: CYCLOBENZAPRINE HYDROCHLORIDE
  3. BOTOX [Concomitant]
     Active Substance: ONABOTULINUMTOXINA
  4. MAGNESIUM [Concomitant]
     Active Substance: MAGNESIUM
  5. AF BETAFOOD [Concomitant]
  6. BIOTIN [Concomitant]
     Active Substance: BIOTIN
  7. DULOXETINE [Suspect]
     Active Substance: DULOXETINE
     Indication: MIGRAINE
     Route: 048
     Dates: start: 20150125, end: 20150409
  8. CYCLOBENZAPRINE [Concomitant]
     Active Substance: CYCLOBENZAPRINE
  9. TOPIRAMATE. [Concomitant]
     Active Substance: TOPIRAMATE
  10. MULTIZYME [Concomitant]
  11. CLORAZEPATE [Concomitant]
     Active Substance: CLORAZEPATE DIPOTASSIUM
  12. CRESTOR [Concomitant]
     Active Substance: ROSUVASTATIN CALCIUM
  13. SUMATRIPTAN. [Concomitant]
     Active Substance: SUMATRIPTAN
  14. BETAFOOD [Concomitant]
  15. NORCO [Concomitant]
     Active Substance: ACETAMINOPHEN\HYDROCODONE BITARTRATE
  16. SIMVASTATIN. [Concomitant]
     Active Substance: SIMVASTATIN
  17. ZINNIA [Concomitant]
  18. HYDROCHLOROTHIAZIDE. [Concomitant]
     Active Substance: HYDROCHLOROTHIAZIDE
  19. HYDROCODONE-CETAMINOPHEN [Concomitant]
  20. TRETINOIN. [Concomitant]
     Active Substance: TRETINOIN
  21. RETINOID [Concomitant]
  22. CHOLACOL + REGENEPLEX [Concomitant]
  23. LEVOTHYROXINE [Concomitant]
     Active Substance: LEVOTHYROXINE
  24. PROSYNBIOTIC [Concomitant]

REACTIONS (28)
  - Muscle spasms [None]
  - Thinking abnormal [None]
  - Skin exfoliation [None]
  - Pyrexia [None]
  - Gait disturbance [None]
  - Illusion [None]
  - Dizziness [None]
  - Feeding disorder [None]
  - Disturbance in attention [None]
  - Myalgia [None]
  - Tremor [None]
  - Fungal infection [None]
  - Diarrhoea [None]
  - Feeling hot [None]
  - Fatigue [None]
  - Lethargy [None]
  - Hypersomnia [None]
  - Abdominal discomfort [None]
  - Flatulence [None]
  - Chills [None]
  - Asthenia [None]
  - Crying [None]
  - Balance disorder [None]
  - Headache [None]
  - Aphasia [None]
  - Amnesia [None]
  - Urinary tract infection [None]
  - Alopecia [None]
